FAERS Safety Report 11798145 (Version 1)
Quarter: 2015Q4

REPORT INFORMATION
  Report Type: Spontaneous
  Country: AU (occurrence: AU)
  Receive Date: 20151203
  Receipt Date: 20151203
  Transmission Date: 20160305
  Serious: Yes (Other)
  Sender: FDA-Public Use
  Company Number: AU-JNJFOC-20151127406

PATIENT
  Sex: Male

DRUGS (1)
  1. RISPERDAL [Suspect]
     Active Substance: RISPERIDONE
     Indication: PRODUCT USED FOR UNKNOWN INDICATION
     Route: 048

REACTIONS (13)
  - Pain [Unknown]
  - Arthralgia [Unknown]
  - Dizziness [Unknown]
  - Aphasia [Unknown]
  - Dyspnoea [Unknown]
  - Confusional state [Unknown]
  - Cerebrovascular accident [Unknown]
  - Dysphemia [Unknown]
  - Disturbance in attention [Unknown]
  - Fall [Unknown]
  - Visual impairment [Unknown]
  - Sleep disorder [Unknown]
  - Diarrhoea [Unknown]
